FAERS Safety Report 8491914-4 (Version None)
Quarter: 2012Q3

REPORT INFORMATION
  Report Type: 
  Country: None (occurrence: None)
  Receive Date: 20120706
  Receipt Date: 20120123
  Transmission Date: 20120928
  Serious: No
  Sender: FDA-Public Use
  Company Number: US-GLAXOSMITHKLINE-A0962709A

PATIENT
  Age: 77 Year
  Sex: Female
  Weight: 68.2 kg

DRUGS (4)
  1. ANTI-CHOLESTEROL MEDICATION [Concomitant]
  2. BLOOD PRESSURE MEDICATION [Concomitant]
  3. FLOVENT [Suspect]
     Indication: ASTHMA
     Dosage: 1PUFF TWICE PER DAY
     Route: 055
     Dates: start: 20070209
  4. PROAIR HFA [Concomitant]

REACTIONS (3)
  - BACK PAIN [None]
  - PRODUCT QUALITY ISSUE [None]
  - CHEST DISCOMFORT [None]
